FAERS Safety Report 6301825-8 (Version None)
Quarter: 2009Q3

REPORT INFORMATION
  Report Type: 
  Country: None (occurrence: None)
  Receive Date: 20090805
  Receipt Date: 20090723
  Transmission Date: 20100115
  Serious: Yes (Life-Threatening, Hospitalization, Other)
  Sender: FDA-Public Use
  Company Number: 2009-00514

PATIENT
  Age: 67 Year
  Sex: Male

DRUGS (9)
  1. VELCADE [Suspect]
     Indication: MULTIPLE MYELOMA
     Dosage: 1.3 MG/M2,; 1 MG/M2,
     Dates: start: 20071113, end: 20080107
  2. VELCADE [Suspect]
  3. VELCADE [Suspect]
  4. VELCADE [Suspect]
  5. TRAMADOL HCL [Concomitant]
  6. ORAMORPH SR [Concomitant]
  7. DOMPERIDONE (DOMPERIDONE) [Concomitant]
  8. LOPERAMIDE (LOPERAMIDE) [Concomitant]
  9. LEVOTHYROXINE SODIUM [Concomitant]

REACTIONS (4)
  - DISCOMFORT [None]
  - MOBILITY DECREASED [None]
  - NEUROPATHY PERIPHERAL [None]
  - PARAESTHESIA [None]
